FAERS Safety Report 5612307-0 (Version None)
Quarter: 2008Q1

REPORT INFORMATION
  Report Type: 
  Country: None (occurrence: None)
  Receive Date: 20080204
  Receipt Date: 20080125
  Transmission Date: 20080703
  Serious: Yes (Death)
  Sender: FDA-Public Use
  Company Number: US-ASTRAZENECA-2007UW25068

PATIENT
  Sex: Male
  Weight: 97.7 kg

DRUGS (1)
  1. SEROQUEL [Suspect]
     Dosage: 25 MG - 100 MG
     Route: 048
     Dates: start: 19990101, end: 20050725

REACTIONS (1)
  - HOMICIDE [None]
